FAERS Safety Report 17749778 (Version 1)
Quarter: 2020Q2

REPORT INFORMATION
  Report Type: Spontaneous
  Country: US (occurrence: US)
  Receive Date: 20200505
  Receipt Date: 20200505
  Transmission Date: 20200714
  Serious: Yes (Hospitalization)
  Sender: FDA-Public Use
  Company Number: None

PATIENT
  Sex: Male

DRUGS (31)
  1. FLUCONAZOLE. [Concomitant]
     Active Substance: FLUCONAZOLE
  2. FLUCONAZOLE. [Concomitant]
     Active Substance: FLUCONAZOLE
  3. ILEVRP DRO [Concomitant]
  4. LEVOFLOXACIN. [Concomitant]
     Active Substance: LEVOFLOXACIN
  5. VENTILIN HFA [Concomitant]
  6. ESOMEPRA MAG [Concomitant]
  7. IPRATROPIUM/SOL ALBUTER [Concomitant]
  8. OXYCONTIN [Concomitant]
     Active Substance: OXYCODONE HYDROCHLORIDE
  9. BUDES/FORMOT [Concomitant]
  10. CEPHALEXIN. [Concomitant]
     Active Substance: CEPHALEXIN
  11. GABAPENTIN. [Concomitant]
     Active Substance: GABAPENTIN
  12. INCRUSE ELLIPTA [Concomitant]
     Active Substance: UMECLIDINIUM BROMIDE
  13. ALPRAZOLAM. [Concomitant]
     Active Substance: ALPRAZOLAM
  14. OXYCODONE AND ACETAMINOPHEN [Concomitant]
     Active Substance: ACETAMINOPHEN\OXYCODONE HYDROCHLORIDE
  15. OXYBUTYNN [Concomitant]
  16. HUMIRA [Suspect]
     Active Substance: ADALIMUMAB
     Indication: RHEUMATOID ARTHRITIS
     Route: 058
     Dates: start: 20190522
  17. ALBUTEROL NEB [Concomitant]
     Active Substance: ALBUTEROL
  18. BUSPIRONE [Concomitant]
     Active Substance: BUSPIRONE HYDROCHLORIDE
  19. DUREZOL [Concomitant]
     Active Substance: DIFLUPREDNATE
  20. NARCIN [Concomitant]
  21. ALENDRONATE [Concomitant]
     Active Substance: ALENDRONATE SODIUM
  22. AMITRIPTLYN [Concomitant]
  23. AMOX/L CLAV [Concomitant]
  24. LEVEMIR [Concomitant]
     Active Substance: INSULIN DETEMIR
  25. PREDNISONE. [Concomitant]
     Active Substance: PREDNISONE
  26. VITAMIN D [Concomitant]
     Active Substance: VITAMIN D NOS
  27. DOXYCYCL HYC [Concomitant]
  28. MORPHINE SUL [Concomitant]
     Active Substance: MORPHINE SULFATE
  29. OSELTAMIVIR [Concomitant]
     Active Substance: OSELTAMIVIR
  30. SYMBICORT [Concomitant]
     Active Substance: BUDESONIDE\FORMOTEROL FUMARATE DIHYDRATE
  31. TRAZODONE [Suspect]
     Active Substance: TRAZODONE HYDROCHLORIDE

REACTIONS (1)
  - Respiratory disorder [None]
